FAERS Safety Report 9482328 (Version 1)
Quarter: 2013Q3

REPORT INFORMATION
  Report Type: Spontaneous
  Country: US (occurrence: US)
  Receive Date: 20130828
  Receipt Date: 20130828
  Transmission Date: 20140515
  Serious: Yes (Hospitalization)
  Sender: FDA-Public Use
  Company Number: US-CELGENEUS-163-21880-13082447

PATIENT
  Age: 48 Year
  Sex: Female
  Weight: 192.04 kg

DRUGS (10)
  1. REVLIMID [Suspect]
     Indication: PLASMA CELL MYELOMA
     Dosage: 25 MILLIGRAM
     Route: 048
     Dates: start: 201107
  2. AMLODIPINE [Concomitant]
     Indication: BLOOD PRESSURE
     Dosage: 10 MILLIGRAM
     Route: 065
  3. LISINOPRIL [Concomitant]
     Indication: BLOOD PRESSURE
     Dosage: 10 MILLIGRAM
     Route: 065
  4. DEXAMETHASONE [Concomitant]
     Indication: PLASMA CELL MYELOMA
     Route: 065
  5. FERROUS SULFATE [Concomitant]
     Indication: MINERAL SUPPLEMENTATION
     Dosage: 325 MILLIGRAM
     Route: 065
  6. ASPIRINE [Concomitant]
     Indication: THROMBOSIS PROPHYLAXIS
     Dosage: 81 MILLIGRAM
     Route: 065
  7. PROPRANOLOL [Concomitant]
     Indication: BLOOD PRESSURE
     Route: 065
  8. PLAVIX [Concomitant]
     Indication: PRODUCT USED FOR UNKNOWN INDICATION
     Dosage: 75 MILLIGRAM
     Route: 065
  9. VITAMIN D [Concomitant]
     Indication: PRODUCT USED FOR UNKNOWN INDICATION
     Dosage: 10,000
     Route: 065
  10. ANTIBIOTICS [Concomitant]
     Indication: PRODUCT USED FOR UNKNOWN INDICATION
     Route: 041

REACTIONS (5)
  - Cholelithiasis [Recovered/Resolved with Sequelae]
  - Dyspnoea [Recovered/Resolved with Sequelae]
  - Hypersensitivity [Recovered/Resolved with Sequelae]
  - Full blood count decreased [Recovered/Resolved with Sequelae]
  - Weight decreased [Recovered/Resolved with Sequelae]
